FAERS Safety Report 8760066 (Version 1)
Quarter: 2012Q4

REPORT INFORMATION
  Report Type: 
  Country: US (occurrence: US)
  Receive Date: 20120829
  Receipt Date: 20120829
  Transmission Date: 20130627
  Serious: No
  Sender: FDA-Public Use
  Company Number: US-009507513-1208USA007974

PATIENT

DRUGS (1)
  1. MIRALAX [Suspect]
     Indication: PRODUCT USED FOR UNKNOWN INDICATION
     Dosage: 34 g, Unknown
     Route: 048

REACTIONS (3)
  - Drug effect decreased [Unknown]
  - Overdose [Unknown]
  - Exposure during breast feeding [Unknown]
